FAERS Safety Report 24873565 (Version 1)
Quarter: 2025Q1

REPORT INFORMATION
  Report Type: Spontaneous
  Country: SE (occurrence: SE)
  Receive Date: 20250122
  Receipt Date: 20250122
  Transmission Date: 20250408
  Serious: Yes (Other)
  Sender: BRISTOL-MYERS SQUIBB COMPANY
  Company Number: None

PATIENT
  Age: 82 Year
  Sex: Male
  Weight: 63 kg

DRUGS (3)
  1. ELIQUIS [Suspect]
     Active Substance: APIXABAN
     Indication: Atrial fibrillation
     Route: 048
     Dates: start: 20241024, end: 20241111
  2. ELIQUIS [Suspect]
     Active Substance: APIXABAN
     Indication: Transient ischaemic attack
  3. ELIQUIS [Suspect]
     Active Substance: APIXABAN
     Indication: Prophylaxis

REACTIONS (1)
  - Blood glucose increased [Not Recovered/Not Resolved]

NARRATIVE: CASE EVENT DATE: 20241028
